FAERS Safety Report 8124393-7 (Version None)
Quarter: 2012Q1

REPORT INFORMATION
  Report Type: 
  Country: None (occurrence: None)
  Receive Date: 20120209
  Receipt Date: 20120209
  Transmission Date: 20120608
  Serious: Yes (Life-Threatening)
  Sender: FDA-Public Use
  Company Number: ID-BAYER-2012-012848

PATIENT
  Age: 25 Year
  Sex: Female

DRUGS (1)
  1. NEXAVAR [Suspect]
     Dosage: 200 MG, BID
     Route: 048
     Dates: start: 20090727

REACTIONS (2)
  - HAEMOGLOBIN DECREASED [None]
  - DIARRHOEA [None]
